FAERS Safety Report 22380802 (Version 1)
Quarter: 2023Q2

REPORT INFORMATION
  Report Type: Spontaneous
  Country: CA (occurrence: CA)
  Receive Date: 20230530
  Receipt Date: 20230530
  Transmission Date: 20230722
  Serious: Yes (Other)
  Sender: FDA-Public Use
  Company Number: CA-AMGEN-CANSP2023090440

PATIENT
  Age: 72 Year
  Sex: Male

DRUGS (1)
  1. LUMAKRAS [Suspect]
     Active Substance: SOTORASIB
     Indication: Product used for unknown indication
     Dosage: 4 MONTHS
     Route: 065

REACTIONS (3)
  - Disease progression [Unknown]
  - Ill-defined disorder [Unknown]
  - Joint stiffness [Unknown]
